FAERS Safety Report 4688283-4 (Version None)
Quarter: 2005Q2

REPORT INFORMATION
  Report Type: 
  Country: None (occurrence: None)
  Receive Date: 20050610
  Receipt Date: 20050310
  Transmission Date: 20051028
  Serious: Yes (Hospitalization)
  Sender: FDA-Public Use
  Company Number: US-MERCK-0503USA02076

PATIENT
  Age: 48 Year
  Sex: Female
  Weight: 82 kg

DRUGS (3)
  1. VIOXX [Suspect]
     Indication: MUSCULOSKELETAL STIFFNESS
     Route: 048
     Dates: end: 20041001
  2. VIOXX [Suspect]
     Indication: PAIN
     Route: 048
     Dates: end: 20041001
  3. TENORMIN [Concomitant]
     Indication: HYPERTENSION
     Route: 065
     Dates: start: 20020101

REACTIONS (16)
  - ATRIAL BIGEMINY [None]
  - CEREBROVASCULAR ACCIDENT [None]
  - CERVICAL DYSPLASIA [None]
  - CHEST PAIN [None]
  - ELECTROCARDIOGRAM T WAVE INVERSION [None]
  - EMOTIONAL DISTRESS [None]
  - FIBROCYSTIC BREAST DISEASE [None]
  - HYPERTENSION [None]
  - MITRAL VALVE INCOMPETENCE [None]
  - POLLAKIURIA [None]
  - STRESS [None]
  - TEMPERATURE INTOLERANCE [None]
  - TRICUSPID VALVE DISEASE [None]
  - TRICUSPID VALVE INCOMPETENCE [None]
  - UMBILICAL HERNIA [None]
  - VENTRICULAR EXTRASYSTOLES [None]
